FAERS Safety Report 6568984-3 (Version None)
Quarter: 2010Q1

REPORT INFORMATION
  Report Type: 
  Country: None (occurrence: None)
  Receive Date: 20100203
  Receipt Date: 20100114
  Transmission Date: 20100710
  Serious: Yes (Other)
  Sender: FDA-Public Use
  Company Number: US-JNJFOC-20100102357

PATIENT
  Age: 68 Year
  Sex: Female
  Weight: 58.97 kg

DRUGS (9)
  1. TYLENOL (CAPLET) [Suspect]
     Indication: ARTHRALGIA
  2. TYLENOL (CAPLET) [Suspect]
  3. TYLENOL (CAPLET) [Suspect]
     Indication: ARTHRITIS
  4. TYLENOL (CAPLET) [Suspect]
  5. SYNTHROID [Concomitant]
     Indication: THYROID DISORDER
  6. PRILOSEC [Concomitant]
     Indication: GASTROINTESTINAL DISORDER
  7. DIOVAN [Concomitant]
  8. RECLAST [Concomitant]
     Indication: OSTEOPOROSIS
  9. INSULIN [Concomitant]
     Route: 058

REACTIONS (5)
  - ABDOMINAL PAIN UPPER [None]
  - CHRONIC LYMPHOCYTIC LEUKAEMIA [None]
  - DIARRHOEA [None]
  - NON-HODGKIN'S LYMPHOMA [None]
  - PRODUCT QUALITY ISSUE [None]
